FAERS Safety Report 26154301 (Version 1)
Quarter: 2025Q4

REPORT INFORMATION
  Report Type: Spontaneous
  Country: CH (occurrence: CH)
  Receive Date: 20251215
  Receipt Date: 20251215
  Transmission Date: 20260118
  Serious: Yes (Other)
  Sender: BOEHRINGER INGELHEIM
  Company Number: CH-BoehringerIngelheim-2025-BI-113009

PATIENT
  Sex: Male
  Weight: 87 kg

DRUGS (13)
  1. OFEV [Suspect]
     Active Substance: NINTEDANIB
     Indication: Idiopathic pulmonary fibrosis
     Dosage: 1-0-1
     Dates: start: 2021
  2. PARI MucoClear inhalation NaCl 3% [Concomitant]
     Indication: Product used for unknown indication
  3. ALBUTEROL SULFATE\IPRATROPIUM BROMIDE [Concomitant]
     Active Substance: ALBUTEROL SULFATE\IPRATROPIUM BROMIDE
     Indication: Product used for unknown indication
     Dosage: 1-1-1
  4. ASPIRIN [Concomitant]
     Active Substance: ASPIRIN
     Indication: Product used for unknown indication
  5. IRBESARTAN MEPHA [Concomitant]
     Indication: Product used for unknown indication
  6. BISOPROLOL MEPHA [Concomitant]
     Indication: Product used for unknown indication
  7. LERCANIDIPIN AXAPHARM [Concomitant]
     Indication: Product used for unknown indication
  8. Ezetimib Atorvastatin Mepha [Concomitant]
     Indication: Product used for unknown indication
     Dosage: 10MG/10MG
  9. BUDESONIDE [Concomitant]
     Active Substance: BUDESONIDE
     Indication: Product used for unknown indication
     Dosage: 2 PER DAY
  10. FLUTICASONE FUROATE [Concomitant]
     Active Substance: FLUTICASONE FUROATE
     Dosage: 2 SPRAYS INTO EACH NOSTRIL.
  11. Pulmicort 200 Turbuhaler [Concomitant]
     Dosage: AS NEEDED
  12. CODEINE PHOSPHATE [Concomitant]
     Active Substance: CODEINE PHOSPHATE
     Indication: Product used for unknown indication
  13. FLUIMUCIL [Concomitant]
     Active Substance: ACETYLCYSTEINE
     Indication: Product used for unknown indication

REACTIONS (1)
  - Idiopathic pulmonary fibrosis [Not Recovered/Not Resolved]
